FAERS Safety Report 16387836 (Version 4)
Quarter: 2019Q3

REPORT INFORMATION
  Report Type: Spontaneous
  Country: ES (occurrence: ES)
  Receive Date: 20190604
  Receipt Date: 20190919
  Transmission Date: 20191004
  Serious: Yes (Other)
  Sender: FDA-Public Use
  Company Number: ES-ASTRAZENECA-2019SE76968

PATIENT
  Age: 6 Month
  Sex: Male
  Weight: 7.5 kg

DRUGS (8)
  1. OP2455 - OMEPRAZOL FARMULA MAGISTRAL [Concomitant]
     Active Substance: OMEPRAZOLE
     Indication: GASTROOESOPHAGEAL REFLUX DISEASE
     Dates: start: 20180809, end: 20190227
  2. CUTIVATE [Concomitant]
     Active Substance: FLUTICASONE PROPIONATE
     Route: 061
     Dates: start: 20190225, end: 20190303
  3. MOTILIUM [Concomitant]
     Active Substance: DOMPERIDONE
     Indication: GASTROOESOPHAGEAL REFLUX DISEASE
     Route: 048
     Dates: start: 20180910, end: 20181016
  4. MOTILIUM [Concomitant]
     Active Substance: DOMPERIDONE
     Indication: VOMITING
     Route: 048
     Dates: start: 20180910, end: 20181016
  5. MOTILIUM [Concomitant]
     Active Substance: DOMPERIDONE
     Indication: VOMITING
     Route: 048
     Dates: start: 20190319
  6. OMEPRAZOL (2141A) [Suspect]
     Active Substance: OMEPRAZOLE
     Dosage: 2.8 MILLILITRES, 12 - EVERY HOUR
     Route: 048
     Dates: start: 20190225, end: 20190425
  7. MOTILIUM [Concomitant]
     Active Substance: DOMPERIDONE
     Indication: GASTROOESOPHAGEAL REFLUX DISEASE
     Route: 048
     Dates: start: 20190319
  8. MINOXIDIL (782A) [Suspect]
     Active Substance: MINOXIDIL
     Route: 048
     Dates: start: 20190225, end: 20190425

REACTIONS (2)
  - Hypertrichosis [Recovering/Resolving]
  - Product formulation issue [Recovered/Resolved]

NARRATIVE: CASE EVENT DATE: 20190225
